FAERS Safety Report 16204887 (Version 1)
Quarter: 2019Q2

REPORT INFORMATION
  Report Type: Spontaneous
  Country: US (occurrence: US)
  Receive Date: 20190416
  Receipt Date: 20190416
  Transmission Date: 20190711
  Serious: No
  Sender: FDA-Public Use
  Company Number: US-TEIKOKU PHARMA USA-TPU2019-00342

PATIENT
  Sex: Female
  Weight: 81.72 kg

DRUGS (9)
  1. LIDODERM [Suspect]
     Active Substance: LIDOCAINE
     Indication: MUSCLE DISORDER
     Dosage: FOREARMS, NECK, SHOULDER AND UPPER BACK
  2. ROSUVASTATIN. [Concomitant]
     Active Substance: ROSUVASTATIN
  3. LIDOCAINE PATCH 5% [Suspect]
     Active Substance: LIDOCAINE
     Indication: PRURITUS
  4. PREVACID [Concomitant]
     Active Substance: LANSOPRAZOLE
  5. LOSARTAN POTASSIUM. [Concomitant]
     Active Substance: LOSARTAN POTASSIUM
  6. GLUCOPHAGE [Concomitant]
     Active Substance: METFORMIN HYDROCHLORIDE
  7. LIDOCAINE PATCH 5% [Suspect]
     Active Substance: LIDOCAINE
     Indication: MUSCLE DISORDER
     Dosage: FOREARMS, NECK, SHOULDER AND UPPER BACK
  8. LIDODERM [Suspect]
     Active Substance: LIDOCAINE
     Indication: PRURITUS
  9. HYDROCHLOROTHIAZIDE. [Concomitant]
     Active Substance: HYDROCHLOROTHIAZIDE

REACTIONS (2)
  - Drug ineffective for unapproved indication [Unknown]
  - Application site rash [Unknown]
